FAERS Safety Report 7118813-4 (Version None)
Quarter: 2010Q4

REPORT INFORMATION
  Report Type: 
  Country: None (occurrence: None)
  Receive Date: 20101123
  Receipt Date: 20100920
  Transmission Date: 20110411
  Serious: No
  Sender: FDA-Public Use
  Company Number: US-KINGPHARMUSA00001-K201001197

PATIENT
  Age: 72 Year
  Sex: Female
  Weight: 56.236 kg

DRUGS (3)
  1. FLECTOR [Suspect]
     Indication: ROTATOR CUFF SYNDROME
     Dosage: 1 PATCH, QD FOR 12 H
     Route: 061
     Dates: start: 20100920, end: 20100921
  2. FLECTOR [Suspect]
     Indication: PAIN
  3. METHADONE HCL [Concomitant]
     Dosage: UNK
     Dates: start: 20100920

REACTIONS (1)
  - DRUG INEFFECTIVE [None]
